FAERS Safety Report 14803761 (Version 1)
Quarter: 2018Q2

REPORT INFORMATION
  Report Type: Spontaneous
  Country: US (occurrence: US)
  Receive Date: 20180425
  Receipt Date: 20180425
  Transmission Date: 20180711
  Serious: No
  Sender: FDA-Public Use
  Company Number: US-B.I. PHARMACEUTICALS,INC./RIDGEFIELD-2018-BI-021559

PATIENT
  Sex: Female

DRUGS (13)
  1. IPRATROPIUM/ALBUTEROL [Concomitant]
     Active Substance: ALBUTEROL\IPRATROPIUM
     Indication: PRODUCT USED FOR UNKNOWN INDICATION
     Dosage: INHALE 3 MILLILITERS BY NEBULIZATION ROUTE 4 TIMES PER DAY
     Route: 067
  2. FLONASE [Concomitant]
     Active Substance: FLUTICASONE PROPIONATE
     Indication: PRODUCT USED FOR UNKNOWN INDICATION
     Dosage: SPRAY 1 SPRAY (50 MCG) IN EACH NOSTRIL BY INTRANASAL ROUTE ONCE DAILY
     Route: 045
  3. GLYCOLAX [Concomitant]
     Active Substance: POLYETHYLENE GLYCOL 3350
     Indication: PRODUCT USED FOR UNKNOWN INDICATION
     Dosage: TAKE 17 GRAM MIXED WITH 8 OZ. WATER, JUICE, SODA, COFFEE OR TEA BY ORAL ROUTE ONCE DAILY
     Route: 048
  4. GUAIFENESIN. [Concomitant]
     Active Substance: GUAIFENESIN
     Indication: PRODUCT USED FOR UNKNOWN INDICATION
     Dosage: TAKE 10 MILILITERES (200 MG) BY ORAL ROUTE EVERY 4 HOURS AS NEEDED
     Route: 048
  5. BENTYL [Concomitant]
     Active Substance: DICYCLOMINE HYDROCHLORIDE
     Indication: PRODUCT USED FOR UNKNOWN INDICATION
     Dosage: STRENGTH 10MG/ML,  INJECT 2 MILLILITERS (20 MG)
     Route: 030
  6. LOSARTAN HYDROCHLOROTHIAZIDE ACTAVIS [Concomitant]
     Active Substance: HYDROCHLOROTHIAZIDE\LOSARTAN POTASSIUM
     Indication: PRODUCT USED FOR UNKNOWN INDICATION
     Dosage: TAKE 1 TABLET BY ORAL ROUTE ONCE DAILY
     Route: 048
  7. VENTOLIN HFA [Concomitant]
     Active Substance: ALBUTEROL SULFATE
     Indication: PRODUCT USED FOR UNKNOWN INDICATION
     Dosage: INHALE 1 PUFF (90 MCG) BY INHALATION ROUTE EVERY 6 HOURS AS NEEDED
     Route: 055
  8. MEDIZINE [Concomitant]
     Indication: PRODUCT USED FOR UNKNOWN INDICATION
     Dosage: TAKE 1 TABLET (25 MG) BY ORAL ROUTE ONCE DAILY
     Route: 048
  9. DILTIAZEM HCL [Concomitant]
     Active Substance: DILTIAZEM HYDROCHLORIDE
     Indication: PRODUCT USED FOR UNKNOWN INDICATION
     Dosage: TAKE 1 CAPSULE  (120 MG) BY ORAL ROUTE 2 TIMES PER DAY FOR 30 DAYS
     Route: 048
     Dates: start: 20180226
  10. OMEPRAZOLE. [Concomitant]
     Active Substance: OMEPRAZOLE
     Indication: PRODUCT USED FOR UNKNOWN INDICATION
     Dosage: TAKE 1 CAPSULE (20 MG) BY ORAL ROUTE ONCE DAILY BEFORE A MEAL
     Route: 048
  11. PRAVASTATIN. [Concomitant]
     Active Substance: PRAVASTATIN
     Indication: PRODUCT USED FOR UNKNOWN INDICATION
     Dosage: TAKE 1 TABLET (20 MG) BY ORAL ROUTE ONCE DAILY
     Route: 048
  12. SINGULAIR [Concomitant]
     Active Substance: MONTELUKAST SODIUM
     Indication: PRODUCT USED FOR UNKNOWN INDICATION
     Dosage: TAKE 1 TABLET (10 MG) BY ORAL ROUTE ONCE DAILY IN THE EVENING
     Route: 048
  13. PRADAXA [Suspect]
     Active Substance: DABIGATRAN ETEXILATE MESYLATE
     Indication: ATRIAL FIBRILLATION
     Dosage: TAKE 1 CAPSULE BY ORAL ROUTE 2 TIMES A DAY FOR 90 DAYS
     Route: 048
     Dates: start: 20180226

REACTIONS (1)
  - Pain in extremity [Unknown]
